FAERS Safety Report 16509584 (Version 1)
Quarter: 2019Q3

REPORT INFORMATION
  Report Type: Spontaneous
  Country: IT (occurrence: IT)
  Receive Date: 20190702
  Receipt Date: 20190702
  Transmission Date: 20191004
  Serious: Yes (Disabling)
  Sender: FDA-Public Use
  Company Number: IT-DRREDDYS-GER/ITL/19/0111311

PATIENT
  Age: 72 Year
  Sex: Male

DRUGS (2)
  1. ACLASTA [Suspect]
     Active Substance: ZOLEDRONIC ACID
     Indication: PRODUCT USED FOR UNKNOWN INDICATION
     Dates: start: 20170101, end: 20190618
  2. IMATINIB. [Suspect]
     Active Substance: IMATINIB MESYLATE
     Indication: PRODUCT USED FOR UNKNOWN INDICATION
     Dates: start: 20170803, end: 20190618

REACTIONS (3)
  - Osteonecrosis of jaw [Not Recovered/Not Resolved]
  - Lip swelling [Not Recovered/Not Resolved]
  - Oral cavity fistula [Not Recovered/Not Resolved]

NARRATIVE: CASE EVENT DATE: 20170803
